FAERS Safety Report 5128340-1 (Version None)
Quarter: 2006Q4

REPORT INFORMATION
  Report Type: 
  Country: None (occurrence: None)
  Receive Date: 20061011
  Receipt Date: 20060928
  Transmission Date: 20070319
  Serious: Yes (Other)
  Sender: FDA-Public Use
  Company Number: 2006098335

PATIENT
  Sex: Male

DRUGS (1)
  1. CABERGOLINE [Suspect]
     Dosage: 1 MG, ORAL
     Route: 048
     Dates: start: 20000101

REACTIONS (6)
  - CARDIAC DISORDER [None]
  - CARDIOVASCULAR DISORDER [None]
  - CONSTIPATION [None]
  - GASTRIC DISORDER [None]
  - INTESTINAL OBSTRUCTION [None]
  - NAUSEA [None]
